FAERS Safety Report 9221908 (Version 1)
Quarter: 2013Q1

REPORT INFORMATION
  Report Type: Spontaneous
  Country: US (occurrence: None)
  Receive Date: 20120913
  Receipt Date: 20120913
  Transmission Date: 20140127
  Serious: Yes (Hospitalization)
  Sender: FDA-Public Use
  Company Number: PHEH2012US010386

PATIENT
  Age: 39 Year
  Sex: Male

DRUGS (4)
  1. EXTAVIA [Suspect]
     Indication: MULTIPLE SCLEROSIS
     Route: 058
     Dates: start: 201011
  2. AMPYRA [Concomitant]
  3. IBUPROFEN ( IBUPROFEN) [Concomitant]
  4. VENLAFAXINE ( VENLAFAXINE) [Concomitant]

REACTIONS (2)
  - Urinary tract infection [None]
  - Injection site mass [None]
